FAERS Safety Report 4567065-8 (Version None)
Quarter: 2005Q1

REPORT INFORMATION
  Report Type: 
  Country: None (occurrence: None)
  Receive Date: 20050201
  Receipt Date: 20050120
  Transmission Date: 20050727
  Serious: Yes (Hospitalization)
  Sender: FDA-Public Use
  Company Number: AR-ROCHE-392945

PATIENT
  Age: 60 Year
  Sex: Female
  Weight: 95 kg

DRUGS (3)
  1. PEGASYS [Suspect]
     Indication: HEPATITIS C
     Route: 058
     Dates: start: 20041217, end: 20041217
  2. RIBAVIRIN [Concomitant]
     Indication: HEPATITIS C
     Route: 048
     Dates: start: 20031213, end: 20041217
  3. DIOCAM [Concomitant]
     Indication: INSOMNIA
     Route: 048
     Dates: start: 20000615

REACTIONS (2)
  - BRONCHOSPASM [None]
  - LUNG DISORDER [None]
